FAERS Safety Report 6148686-8 (Version None)
Quarter: 2009Q2

REPORT INFORMATION
  Report Type: 
  Country: None (occurrence: None)
  Receive Date: 20090406
  Receipt Date: 20090406
  Transmission Date: 20091009
  Serious: Yes (Hospitalization, Disabling)
  Sender: FDA-Public Use
  Company Number: None

PATIENT
  Age: 18 Year
  Sex: Female
  Weight: 46.7205 kg

DRUGS (2)
  1. LEVAQUIN [Suspect]
     Indication: INFECTION
     Dosage: ONCE IV ONCE DURING JULY 2008
     Route: 042
     Dates: start: 20080701
  2. METOPROLOL SUCCINATE [Concomitant]

REACTIONS (1)
  - HEART RATE INCREASED [None]
